FAERS Safety Report 10427188 (Version 1)
Quarter: 2014Q3

REPORT INFORMATION
  Report Type: Spontaneous
  Country: US (occurrence: US)
  Receive Date: 20140903
  Receipt Date: 20140903
  Transmission Date: 20150326
  Serious: No
  Sender: FDA-Public Use
  Company Number: US-BANPHARM-20142558

PATIENT
  Age: 63 Year
  Sex: Male
  Weight: 63.5 kg

DRUGS (7)
  1. VITAMIN D 400 IU [Concomitant]
     Dosage: 1 DF, QD,
  2. FISH OIL 1200 IU [Concomitant]
     Dosage: 1 DF, QD,
  3. ZYRTEC [Suspect]
     Active Substance: CETIRIZINE HYDROCHLORIDE
     Route: 048
  4. ZINC 50 MG [Concomitant]
     Dosage: 1 DF, QD,
  5. VITAMIN E 400 IU [Concomitant]
     Dosage: 1 DF, QD,
  6. SUPER B COMPLEX PLUS VITAMIN C [Concomitant]
     Dosage: 1 DF, QD,
  7. BENMZEPRIL 20/12.5 MG [Concomitant]
     Indication: HYPERTENSION
     Dosage: 1 DF, QD,
     Dates: start: 20140323, end: 20140324

REACTIONS (2)
  - Inflammation [Recovering/Resolving]
  - Pain in extremity [Recovering/Resolving]
